FAERS Safety Report 7431270-3 (Version None)
Quarter: 2011Q2

REPORT INFORMATION
  Report Type: 
  Country: None (occurrence: None)
  Receive Date: 20110421
  Receipt Date: 20110119
  Transmission Date: 20111010
  Serious: No
  Sender: FDA-Public Use
  Company Number: US-TEVA-264127USA

PATIENT
  Sex: Female
  Weight: 46.762 kg

DRUGS (5)
  1. ESTRACE [Concomitant]
     Indication: MENOPAUSE
     Route: 048
  2. PLAN B ONE-STEP [Suspect]
     Indication: POST COITAL CONTRACEPTION
     Dosage: 1.5 MILLIGRAM;
     Route: 048
     Dates: start: 20110114, end: 20110114
  3. HERBAL EQUILIBRIUM [Concomitant]
     Indication: PHYTOTHERAPY
     Route: 048
  4. ZYRTEC [Concomitant]
     Indication: SEASONAL ALLERGY
     Route: 048
     Dates: start: 20080101
  5. MULTI-VITAMIN [Concomitant]
     Indication: VITAMIN SUPPLEMENTATION
     Route: 048

REACTIONS (2)
  - PELVIC PAIN [None]
  - MENSTRUATION IRREGULAR [None]
